FAERS Safety Report 16667822 (Version 1)
Quarter: 2019Q3

REPORT INFORMATION
  Report Type: Report from Study
  Country: US (occurrence: US)
  Receive Date: 20190805
  Receipt Date: 20190805
  Transmission Date: 20191004
  Serious: Yes (Hospitalization, Other)
  Sender: FDA-Public Use
  Company Number: US-MYLANLABS-2019M1072257

PATIENT
  Age: 68 Year
  Sex: Male

DRUGS (3)
  1. CABERGOLINE. [Concomitant]
     Active Substance: CABERGOLINE
     Indication: PROLACTIN-PRODUCING PITUITARY TUMOUR
     Dosage: DOSE INCREASED
     Route: 065
  2. CABERGOLINE. [Concomitant]
     Active Substance: CABERGOLINE
     Dosage: 1.5 MILLIGRAM, QD
  3. EVEROLIMUS. [Suspect]
     Active Substance: EVEROLIMUS
     Indication: PROLACTIN-PRODUCING PITUITARY TUMOUR
     Dosage: 10 MILLIGRAM, QD
     Route: 065

REACTIONS (5)
  - Hyperglycaemia [Recovered/Resolved]
  - Hypogeusia [Recovered/Resolved]
  - Stomatitis [Recovered/Resolved]
  - Altered state of consciousness [Recovered/Resolved]
  - Off label use [Unknown]
